FAERS Safety Report 5449220-8 (Version None)
Quarter: 2007Q3

REPORT INFORMATION
  Report Type: 
  Country: None (occurrence: None)
  Receive Date: 20070911
  Receipt Date: 20070827
  Transmission Date: 20080115
  Serious: No
  Sender: FDA-Public Use
  Company Number: US-BOEHRINGER INGELHEIM PHARMACEUTICALS, INC.-2007-BP-20025BP

PATIENT
  Sex: Female

DRUGS (5)
  1. SPIRIVA [Suspect]
     Indication: CHRONIC OBSTRUCTIVE PULMONARY DISEASE
     Route: 055
     Dates: start: 20070401
  2. SPIRIVA [Suspect]
     Indication: EMPHYSEMA
  3. OXYGEN [Concomitant]
     Dates: start: 20041010
  4. ALBUTEROL [Concomitant]
     Dates: start: 20041010
  5. ATROVENT [Concomitant]
     Dates: start: 20070201

REACTIONS (1)
  - THERAPEUTIC RESPONSE DECREASED [None]
